FAERS Safety Report 4387826-8 (Version None)
Quarter: 2004Q2

REPORT INFORMATION
  Report Type: 
  Country: None (occurrence: None)
  Receive Date: 20040630
  Receipt Date: 20040609
  Transmission Date: 20050107
  Serious: Yes (Hospitalization)
  Sender: FDA-Public Use
  Company Number: PHBS2004JP07665

PATIENT
  Age: 64 Year
  Sex: Female

DRUGS (2)
  1. SANOREX [Suspect]
     Indication: OBESITY
     Route: 048
  2. BOHUTUSYOSAN [Suspect]
     Indication: OBESITY
     Route: 048

REACTIONS (15)
  - ALANINE AMINOTRANSFERASE INCREASED [None]
  - ANOREXIA [None]
  - ASPARTATE AMINOTRANSFERASE INCREASED [None]
  - BILIRUBIN CONJUGATED INCREASED [None]
  - BIOPSY LIVER ABNORMAL [None]
  - BLOOD ALKALINE PHOSPHATASE INCREASED [None]
  - BLOOD BILIRUBIN INCREASED [None]
  - EOSINOPHIL COUNT [None]
  - GAMMA-GLUTAMYLTRANSFERASE INCREASED [None]
  - HEPATIC ATROPHY [None]
  - HEPATIC NECROSIS [None]
  - JAUNDICE [None]
  - LIVER DISORDER [None]
  - LYMPHOCYTIC INFILTRATION [None]
  - OCULAR ICTERUS [None]
